FAERS Safety Report 25897651 (Version 1)
Quarter: 2025Q4

REPORT INFORMATION
  Report Type: Report from Study
  Country: US (occurrence: US)
  Receive Date: 20251008
  Receipt Date: 20251008
  Transmission Date: 20260118
  Serious: Yes (Other)
  Sender: TAKEDA
  Company Number: US-TAKEDA-2025TUS032044

PATIENT
  Age: 77 Year
  Sex: Male

DRUGS (1)
  1. MARIBAVIR [Suspect]
     Active Substance: MARIBAVIR
     Indication: Cytomegalovirus infection
     Dosage: 400 MILLIGRAM, BID
     Dates: start: 20250317

REACTIONS (4)
  - Lung neoplasm malignant [Unknown]
  - Lung neoplasm [Unknown]
  - Off label use [Unknown]
  - Taste disorder [Unknown]
